FAERS Safety Report 4347104-X (Version None)
Quarter: 2004Q2

REPORT INFORMATION
  Report Type: 
  Country: None (occurrence: None)
  Receive Date: 20040422
  Receipt Date: 20040415
  Transmission Date: 20050107
  Serious: Yes (Death)
  Sender: FDA-Public Use
  Company Number: FR-JNJFOC-20040403315

PATIENT
  Age: 90 Year
  Sex: Male

DRUGS (13)
  1. TRAMADOL HCL [Suspect]
     Indication: DRUG USE FOR UNKNOWN INDICATION
     Dosage: 50 MG, 3 IN 1 DAY, ORAL
     Route: 048
     Dates: start: 20040308
  2. PERFALGAN (ALL OTHER THERAPEUTIC PRODUCTS) [Suspect]
     Indication: DRUG USE FOR UNKNOWN INDICATION
     Dosage: INTRAVENOUS
     Route: 042
  3. ACUPAN [Suspect]
     Dosage: INTRAVENOUS
     Route: 042
     Dates: start: 20040308, end: 20040315
  4. AMLODIPINE BESYLATE [Suspect]
     Dosage: ORAL
     Route: 048
     Dates: start: 20040308, end: 20040315
  5. GLYBURIDE [Concomitant]
  6. PREDNISONE TAB [Concomitant]
  7. CORVASAL (MOLSIDOMINE) [Concomitant]
  8. STILNOX (ZOLPIDEM) [Concomitant]
  9. SECTRAL [Concomitant]
  10. PLAVIX [Concomitant]
  11. ASPEGIC 1000 [Concomitant]
  12. DUPHALAC [Concomitant]
  13. CREON [Concomitant]

REACTIONS (14)
  - ALANINE AMINOTRANSFERASE INCREASED [None]
  - ASPARTATE AMINOTRANSFERASE INCREASED [None]
  - BLOOD PRESSURE SYSTOLIC INCREASED [None]
  - CARDIOPULMONARY FAILURE [None]
  - CHEST PAIN [None]
  - CHROMATURIA [None]
  - COMA [None]
  - COOMBS DIRECT TEST POSITIVE [None]
  - DRUG INTERACTION [None]
  - HAEMOLYTIC ANAEMIA [None]
  - HEPATIC ENZYME INCREASED [None]
  - JAUNDICE [None]
  - RENAL IMPAIRMENT [None]
  - SHOCK [None]
